FAERS Safety Report 23347829 (Version 1)
Quarter: 2023Q4

REPORT INFORMATION
  Report Type: Spontaneous
  Country: US (occurrence: None)
  Receive Date: 20231228
  Receipt Date: 20231228
  Transmission Date: 20240109
  Serious: Yes (Hospitalization)
  Sender: FDA-Public Use
  Company Number: None

PATIENT
  Age: 74 Year
  Sex: Female

DRUGS (11)
  1. ENBREL [Suspect]
     Active Substance: ETANERCEPT
     Indication: Rheumatoid arthritis
     Dosage: FREQUENCY : WEEKLY;?
     Route: 058
     Dates: start: 20230220
  2. CREON [Concomitant]
     Active Substance: PANCRELIPASE AMYLASE\PANCRELIPASE LIPASE\PANCRELIPASE PROTEASE
  3. ADVAIR DISKUS [Concomitant]
     Active Substance: FLUTICASONE PROPIONATE\SALMETEROL XINAFOATE
  4. ALPRAZOLAM [Concomitant]
  5. ASPIRIN [Concomitant]
  6. ATENOLOL [Concomitant]
     Active Substance: ATENOLOL
  7. ATORVASTATIN [Concomitant]
  8. AZATHIOPRINE [Concomitant]
  9. CALCIUM W/D [Concomitant]
  10. DULOXETINE [Concomitant]
     Active Substance: DULOXETINE
  11. FURSOEMIDE [Concomitant]

REACTIONS (1)
  - Urinary tract infection [None]

NARRATIVE: CASE EVENT DATE: 20231226
